FAERS Safety Report 9027847 (Version 1)
Quarter: 2013Q1

REPORT INFORMATION
  Report Type: Spontaneous
  Country: CA (occurrence: CA)
  Receive Date: 20130124
  Receipt Date: 20130124
  Transmission Date: 20140127
  Serious: Yes (Hospitalization)
  Sender: FDA-Public Use
  Company Number: CA-JNJFOC-20130108960

PATIENT
  Age: 19 Year
  Sex: Female
  Weight: 80 kg

DRUGS (3)
  1. TYLENOL ARTHRITIS PAIN ER [Suspect]
     Route: 065
  2. TYLENOL ARTHRITIS PAIN ER [Suspect]
     Indication: PRODUCT USED FOR UNKNOWN INDICATION
     Dosage: 650MG
     Route: 065
  3. ACTEMRA [Suspect]
     Indication: PRODUCT USED FOR UNKNOWN INDICATION
     Route: 065

REACTIONS (3)
  - Overdose [Recovered/Resolved]
  - Vomiting [Recovered/Resolved]
  - Weight increased [Not Recovered/Not Resolved]
